FAERS Safety Report 10165479 (Version 1)
Quarter: 2014Q2

REPORT INFORMATION
  Report Type: Spontaneous
  Country: US (occurrence: US)
  Receive Date: 20140510
  Receipt Date: 20140510
  Transmission Date: 20141212
  Serious: No
  Sender: FDA-Public Use
  Company Number: US-BRISTOL-MYERS SQUIBB COMPANY-20504981

PATIENT
  Age: 74 Year
  Sex: Male
  Weight: 99.77 kg

DRUGS (8)
  1. BYDUREON [Suspect]
     Indication: TYPE 2 DIABETES MELLITUS
     Route: 058
     Dates: start: 20140121
  2. METFORMIN HCL [Concomitant]
  3. GLIPIZIDE [Concomitant]
  4. BENAZEPRIL HCL [Concomitant]
  5. HYDROCHLOROTHIAZIDE [Concomitant]
     Indication: JOINT SWELLING
  6. NAPROXEN SODIUM [Concomitant]
  7. SIMVASTATIN [Concomitant]
  8. ASPIRIN [Concomitant]

REACTIONS (5)
  - Injection site nodule [Recovering/Resolving]
  - Injection site haemorrhage [Recovered/Resolved]
  - Flatulence [Unknown]
  - Neuropathy peripheral [Recovering/Resolving]
  - Incorrect route of drug administration [Unknown]
